FAERS Safety Report 25209702 (Version 4)
Quarter: 2025Q4

REPORT INFORMATION
  Report Type: Report from Study
  Country: EU (occurrence: EU)
  Receive Date: 20250417
  Receipt Date: 20251106
  Transmission Date: 20260118
  Serious: Yes (Other)
  Sender: TAKEDA
  Company Number: EU-TAKEDA-2025TUS036438

PATIENT
  Sex: Female

DRUGS (1)
  1. FRUQUINTINIB [Suspect]
     Active Substance: FRUQUINTINIB
     Indication: Colorectal cancer metastatic
     Dosage: UNK

REACTIONS (4)
  - Colorectal cancer metastatic [Unknown]
  - Hepatic lesion [Unknown]
  - Pulmonary mass [Unknown]
  - Hypertension [Unknown]
